FAERS Safety Report 9543913 (Version 1)
Quarter: 2013Q3

REPORT INFORMATION
  Report Type: Spontaneous
  Country: US (occurrence: US)
  Receive Date: 20130923
  Receipt Date: 20130923
  Transmission Date: 20140515
  Serious: Yes (Death, Hospitalization, Other)
  Sender: FDA-Public Use
  Company Number: US-AMGEN-USASP2013066473

PATIENT
  Age: 45 Year
  Sex: Male

DRUGS (1)
  1. ENBREL [Suspect]
     Indication: RHEUMATOID ARTHRITIS
     Dosage: UNK EVERY FIVE DAYS
     Route: 065
     Dates: start: 20120516

REACTIONS (3)
  - Death [Fatal]
  - Heart valve incompetence [Recovered/Resolved]
  - Heart rate abnormal [Recovered/Resolved]
